FAERS Safety Report 9075149 (Version 3)
Quarter: 2013Q4

REPORT INFORMATION
  Report Type: Spontaneous
  Country: GB (occurrence: GB)
  Receive Date: 20130201
  Receipt Date: 20131205
  Transmission Date: 20140711
  Serious: Yes (Hospitalization, Other)
  Sender: FDA-Public Use
  Company Number: GB-B.I. PHARMACEUTICALS,INC./RIDGEFIELD-2013-UK-00100UK

PATIENT
  Age: 65 Year
  Sex: Male

DRUGS (6)
  1. PRADAXA [Suspect]
     Indication: ATRIAL FLUTTER
     Dosage: 300 MG
     Route: 048
     Dates: start: 20121023, end: 20121225
  2. BISOPROLOL [Concomitant]
  3. CANDESARTAN [Concomitant]
     Indication: HYPERTENSION
     Dosage: 32 MG
  4. FUROSEMIDE [Concomitant]
     Dosage: 40 MG
  5. ROSUVASTATIN [Concomitant]
  6. SPIRONOLACTONE [Concomitant]

REACTIONS (16)
  - Renal failure acute [Recovered/Resolved]
  - Epistaxis [Recovered/Resolved]
  - Rectal haemorrhage [Recovered/Resolved]
  - Angina pectoris [Unknown]
  - Arteriosclerosis coronary artery [Unknown]
  - Chest discomfort [Not Recovered/Not Resolved]
  - Pain in extremity [Unknown]
  - Decreased interest [Not Recovered/Not Resolved]
  - Mood swings [Not Recovered/Not Resolved]
  - Depressed mood [Unknown]
  - Aphagia [Not Recovered/Not Resolved]
  - Weight decreased [Not Recovered/Not Resolved]
  - Paraesthesia [Not Recovered/Not Resolved]
  - Dizziness [Unknown]
  - Hypotension [Unknown]
  - Arrhythmia [Unknown]
